FAERS Safety Report 19698949 (Version 1)
Quarter: 2021Q3

REPORT INFORMATION
  Report Type: Report from Study
  Country: CN (occurrence: CN)
  Receive Date: 20210813
  Receipt Date: 20210813
  Transmission Date: 20211014
  Serious: Yes (Other)
  Sender: FDA-Public Use
  Company Number: CN-SA-2021SA267370

PATIENT

DRUGS (4)
  1. CYCLOPHOSPHAMIDE. [Suspect]
     Active Substance: CYCLOPHOSPHAMIDE
     Indication: PROPHYLAXIS AGAINST GRAFT VERSUS HOST DISEASE
     Dosage: 50 MG/KG, QD (ON DAYS 3 AND 4)
  2. TACROLIMUS. [Suspect]
     Active Substance: TACROLIMUS
     Indication: PROPHYLAXIS AGAINST GRAFT VERSUS HOST DISEASE
     Dosage: 0.5 MG/KG, BID; STARTING ON DAY 5 ADJUSTED WITH TARGET THERAPEUTIC TROUGH LEVEL OF 5?15 NG/ML
  3. SULFAMETHOXAZOLE [Concomitant]
     Active Substance: SULFAMETHOXAZOLE
     Indication: ANTIFUNGAL PROPHYLAXIS
     Dosage: UNK UNK, QOD
  4. ANTI?THYMOCYTE GLOBULIN (RABBIT) NOS [Suspect]
     Active Substance: LAPINE T-LYMPHOCYTE IMMUNE GLOBULIN
     Indication: PROPHYLAXIS AGAINST GRAFT VERSUS HOST DISEASE
     Dosage: 2.5 MG/KG, 1X; 2.5 MG/KG, 1X ON DAY 15 OR 22

REACTIONS (3)
  - Pancytopenia [Recovered/Resolved]
  - Transplant failure [Recovered/Resolved]
  - Cytomegalovirus infection reactivation [Unknown]
